FAERS Safety Report 5622134-6 (Version None)
Quarter: 2008Q1

REPORT INFORMATION
  Report Type: 
  Country: None (occurrence: None)
  Receive Date: 20080206
  Receipt Date: 20080122
  Transmission Date: 20080703
  Serious: Yes (Other)
  Sender: FDA-Public Use
  Company Number: 2008JP000524

PATIENT
  Age: 48 Year
  Sex: Male

DRUGS (8)
  1. PROGRAF [Suspect]
     Indication: LIVER TRANSPLANT
  2. PREDNISONE TAB [Concomitant]
  3. FENTANYL [Concomitant]
  4. PROPOFOL [Concomitant]
  5. CISATRACURIUM (CISATRACURIUM) [Concomitant]
  6. OXYGEN (OXYGEN) [Concomitant]
  7. ISOFLURANE [Concomitant]
  8. DANTROLENE SODIUM [Concomitant]

REACTIONS (1)
  - CHOLESTASIS [None]
